FAERS Safety Report 13491769 (Version 1)
Quarter: 2017Q2

REPORT INFORMATION
  Report Type: Spontaneous
  Country: ES (occurrence: ES)
  Receive Date: 20170427
  Receipt Date: 20170427
  Transmission Date: 20170830
  Serious: Yes (Other)
  Sender: FDA-Public Use
  Company Number: ES-ELI_LILLY_AND_COMPANY-ES201704009803

PATIENT
  Sex: Female

DRUGS (3)
  1. ADCIRCA [Suspect]
     Active Substance: TADALAFIL
     Indication: PULMONARY ARTERIAL HYPERTENSION
     Dosage: 20 MG, QD
     Route: 065
  2. ADCIRCA [Suspect]
     Active Substance: TADALAFIL
     Dosage: 40 MG, QD
     Route: 065
  3. XARELTO [Concomitant]
     Active Substance: RIVAROXABAN
     Indication: PRODUCT USED FOR UNKNOWN INDICATION
     Dosage: UNK, UNKNOWN
     Route: 065

REACTIONS (10)
  - Sciatica [Recovering/Resolving]
  - Meniscus injury [Unknown]
  - Sleep disorder [Unknown]
  - Confusional state [Unknown]
  - Fear [Unknown]
  - Pain in extremity [Recovering/Resolving]
  - Joint stiffness [Unknown]
  - Dizziness [Unknown]
  - Iron overload [Unknown]
  - Fatigue [Unknown]

NARRATIVE: CASE EVENT DATE: 2016
